FAERS Safety Report 13227181 (Version 1)
Quarter: 2017Q1

REPORT INFORMATION
  Report Type: Spontaneous
  Country: GB (occurrence: GB)
  Receive Date: 20170213
  Receipt Date: 20170213
  Transmission Date: 20170428
  Serious: Yes (Other)
  Sender: FDA-Public Use
  Company Number: GB-PURDUE PHARMA-GBR-2016-0042396

PATIENT
  Age: 80 Year
  Sex: Female

DRUGS (3)
  1. RISPERIDONE. [Concomitant]
     Active Substance: RISPERIDONE
  2. BUTRANS [Suspect]
     Active Substance: BUPRENORPHINE
     Indication: COCCYDYNIA
     Dosage: 15 MCG, Q1H (5 AND 10MCG STRENGTH)
     Route: 062
  3. BUTRANS [Suspect]
     Active Substance: BUPRENORPHINE
     Dosage: 10 MCG, Q1H (TWO 5MCG PATCHES)
     Route: 062

REACTIONS (6)
  - Incorrect drug administration duration [Recovered/Resolved]
  - Wrong technique in product usage process [Recovered/Resolved]
  - Dementia Alzheimer^s type [Not Recovered/Not Resolved]
  - Drug titration error [Recovered/Resolved]
  - Loss of consciousness [Recovered/Resolved]
  - Somnolence [Recovered/Resolved]

NARRATIVE: CASE EVENT DATE: 2012
